FAERS Safety Report 5331833-5 (Version None)
Quarter: 2007Q2

REPORT INFORMATION
  Report Type: 
  Country: None (occurrence: None)
  Receive Date: 20070301
  Receipt Date: 20061122
  Transmission Date: 20071010
  Serious: Yes (Other)
  Sender: FDA-Public Use
  Company Number: 3545

PATIENT
  Age: 9 Year
  Sex: Female

DRUGS (4)
  1. CLARAVIS [Suspect]
     Indication: NEUROBLASTOMA
     Dosage: 30 MG, QD, PO
     Route: 048
     Dates: start: 20060414, end: 20060501
  2. SOTRET           (ISOTRETINOIN) 1 [Suspect]
     Dosage: SEE IMAGE
     Route: 048
     Dates: start: 20060524, end: 20060601
  3. SOTRET           (ISOTRETINOIN) 1 [Suspect]
     Dosage: SEE IMAGE
     Route: 048
     Dates: start: 20060601, end: 20060801
  4. AMNESTEEM                       (ISOTRETINOIN), 10 MG, 40 MG [Suspect]
     Dosage: 50 MG QD PO
     Route: 048
     Dates: start: 20060801, end: 20060901

REACTIONS (1)
  - DRUG INEFFECTIVE FOR UNAPPROVED INDICATION [None]
